FAERS Safety Report 7300992-7 (Version None)
Quarter: 2011Q1

REPORT INFORMATION
  Report Type: 
  Country: None (occurrence: None)
  Receive Date: 20110218
  Receipt Date: 20110210
  Transmission Date: 20110831
  Serious: Yes (Hospitalization, Other)
  Sender: FDA-Public Use
  Company Number: US-AMGEN-USASP2010003867

PATIENT
  Age: 52 Year
  Sex: Male

DRUGS (7)
  1. TRICOR [Concomitant]
     Dosage: 48 MG, QD
     Dates: start: 20080901
  2. IMURAN [Concomitant]
     Dosage: 100 MG, QD
     Dates: start: 20080901
  3. BACTRIM [Concomitant]
     Indication: POST PROCEDURAL INFECTION
  4. ENBREL [Suspect]
     Dosage: 50 MG, QWK
     Route: 058
     Dates: start: 20070101
  5. TESTOSTERONE [Concomitant]
     Dosage: 1 ML, QWK
  6. ENBREL [Suspect]
     Indication: RHEUMATOID ARTHRITIS
     Dosage: 50 MG, QWK
     Route: 058
     Dates: start: 20070101, end: 20101001
  7. ADVAIR [Concomitant]
     Dosage: UNK
     Dates: start: 20071101

REACTIONS (15)
  - OPERATIVE HAEMORRHAGE [None]
  - LIGAMENT RUPTURE [None]
  - INCISION SITE COMPLICATION [None]
  - ABDOMINAL INFECTION [None]
  - RHEUMATOID ARTHRITIS [None]
  - ROTATOR CUFF SYNDROME [None]
  - STAPHYLOCOCCAL INFECTION [None]
  - LOCALISED INTRAABDOMINAL FLUID COLLECTION [None]
  - INCISION SITE INFECTION [None]
  - POST PROCEDURAL COMPLICATION [None]
  - INCISION SITE ERYTHEMA [None]
  - POSTOPERATIVE FEVER [None]
  - INCISION SITE OEDEMA [None]
  - FEELING HOT [None]
  - PROCEDURAL PAIN [None]
